APPROVED DRUG PRODUCT: METOPROLOL SUCCINATE
Active Ingredient: METOPROLOL SUCCINATE
Strength: EQ 50MG TARTRATE
Dosage Form/Route: TABLET, EXTENDED RELEASE;ORAL
Application: A215637 | Product #002
Applicant: ACCORD HEALTHCARE INC
Approved: Oct 18, 2022 | RLD: No | RS: No | Type: DISCN